FAERS Safety Report 24711107 (Version 1)
Quarter: 2024Q4

REPORT INFORMATION
  Report Type: Spontaneous
  Country: MX (occurrence: MX)
  Receive Date: 20241209
  Receipt Date: 20241209
  Transmission Date: 20250115
  Serious: Yes (Hospitalization, Other)
  Sender: GLAND PHARMA LTD
  Company Number: MX-GLANDPHARMA-MX-2024GLNLIT01192

PATIENT
  Age: 8 Year
  Sex: Female

DRUGS (1)
  1. DOXORUBICIN HYDROCHLORIDE [Suspect]
     Active Substance: DOXORUBICIN HYDROCHLORIDE
     Indication: Acute lymphocytic leukaemia
     Route: 065

REACTIONS (3)
  - Cardiotoxicity [Unknown]
  - Systolic dysfunction [Unknown]
  - Diastolic dysfunction [Unknown]
